FAERS Safety Report 10709386 (Version 1)
Quarter: 2015Q1

REPORT INFORMATION
  Report Type: Report from Study
  Country: CO (occurrence: CO)
  Receive Date: 20150114
  Receipt Date: 20150114
  Transmission Date: 20150721
  Serious: Yes (Hospitalization)
  Sender: FDA-Public Use
  Company Number: CO-ROCHE-1495439

PATIENT
  Age: 45 Year
  Sex: Female
  Weight: 72 kg

DRUGS (6)
  1. XOLAIR [Suspect]
     Active Substance: OMALIZUMAB
     Indication: RHINITIS
     Dosage: FOR 12 MONTHS
     Route: 058
     Dates: start: 20141104
  2. XOLAIR [Suspect]
     Active Substance: OMALIZUMAB
     Indication: RESPIRATORY FAILURE
     Route: 058
     Dates: start: 20141210
  3. XOLAIR [Suspect]
     Active Substance: OMALIZUMAB
     Indication: ASTHMA
     Dosage: FOR 12 MONTHS
     Route: 058
     Dates: start: 20140702
  4. XOLAIR [Suspect]
     Active Substance: OMALIZUMAB
     Indication: MASTOCYTOSIS
  5. SALBUTAMOL [Concomitant]
     Active Substance: ALBUTEROL
  6. MONTELUKAST [Concomitant]
     Active Substance: MONTELUKAST SODIUM

REACTIONS (9)
  - Angina unstable [Recovered/Resolved]
  - Hypoaesthesia [Unknown]
  - Chills [Recovered/Resolved]
  - Chikungunya virus infection [Unknown]
  - Nausea [Recovered/Resolved]
  - Product use issue [Unknown]
  - Nervousness [Unknown]
  - Application site pruritus [Recovered/Resolved]
  - Influenza [Unknown]

NARRATIVE: CASE EVENT DATE: 20141104
